APPROVED DRUG PRODUCT: PROTRIPTYLINE HYDROCHLORIDE
Active Ingredient: PROTRIPTYLINE HYDROCHLORIDE
Strength: 5MG
Dosage Form/Route: TABLET;ORAL
Application: A078913 | Product #001
Applicant: HIKMA PHARMACEUTICALS USA INC
Approved: Sep 16, 2008 | RLD: No | RS: No | Type: DISCN